FAERS Safety Report 21376033 (Version 3)
Quarter: 2022Q4

REPORT INFORMATION
  Report Type: Report from Study
  Country: KR (occurrence: KR)
  Receive Date: 20220926
  Receipt Date: 20221101
  Transmission Date: 20230113
  Serious: Yes (Death)
  Sender: FDA-Public Use
  Company Number: KR-DECIPHERA PHARMACEUTICALS LLC-2022KR000792

PATIENT
  Sex: Male

DRUGS (1)
  1. RIPRETINIB [Suspect]
     Active Substance: RIPRETINIB
     Indication: Gastrointestinal stromal tumour
     Dosage: 150 MILLIGRAM, QD
     Route: 048
     Dates: start: 20220105, end: 20220426

REACTIONS (2)
  - Hepatic failure [Fatal]
  - Disease progression [Fatal]
